FAERS Safety Report 5602621-7 (Version None)
Quarter: 2008Q1

REPORT INFORMATION
  Report Type: 
  Country: None (occurrence: None)
  Receive Date: 20080125
  Receipt Date: 20080116
  Transmission Date: 20080703
  Serious: Yes (Other)
  Sender: FDA-Public Use
  Company Number: GB-ROCHE-528730

PATIENT
  Age: 40 Year
  Sex: Female
  Weight: 107.5 kg

DRUGS (7)
  1. ORLISTAT [Suspect]
     Indication: OBESITY
     Route: 048
     Dates: start: 20070605
  2. GAVISCON [Suspect]
     Indication: DRUG USE FOR UNKNOWN INDICATION
     Dosage: DRUG RECEIVED OVER THE COUNTER (OTC)
     Route: 048
     Dates: end: 20071119
  3. CO-CODAMOL [Concomitant]
     Dosage: DOSE: 30/500 MG PRN, GIVEN 6-8 TABLETS PER DAY.
     Route: 048
     Dates: start: 20000512
  4. SENNA [Concomitant]
     Indication: CONSTIPATION
     Dosage: GIVEN TWO TABLETS AT NIGHT.
     Route: 048
     Dates: start: 20010409
  5. DULOXETINE [Concomitant]
     Indication: DEPRESSION
     Route: 048
     Dates: start: 20050523
  6. FENTANYL [Concomitant]
     Dosage: ROUTE: DERMAL, CHANGED EVERY THIRD DAY.
     Route: 061
     Dates: start: 20050427
  7. QUININE SULFATE [Concomitant]
     Dosage: RECEIVED NIGHTLY
     Route: 048
     Dates: start: 20070502

REACTIONS (1)
  - FAECES DISCOLOURED [None]
